FAERS Safety Report 24055108 (Version 3)
Quarter: 2024Q3

REPORT INFORMATION
  Report Type: Spontaneous
  Country: BR (occurrence: BR)
  Receive Date: 20240705
  Receipt Date: 20240930
  Transmission Date: 20241016
  Serious: Yes (Other)
  Sender: UCB
  Company Number: BR-UCBSA-2024033961

PATIENT
  Age: 52 Year
  Sex: Male
  Weight: 95 kg

DRUGS (4)
  1. KEPPRA [Suspect]
     Active Substance: LEVETIRACETAM
     Indication: Epilepsy
     Dosage: 1000 MILLIGRAM
     Dates: start: 202305
  2. KEPPRA [Suspect]
     Active Substance: LEVETIRACETAM
     Dosage: 2 TABLETS OF 750 MG AT 09:00 AM, 1 TABLET OF 750 MG AT 3:00 PM
  3. KEPPRA XR [Suspect]
     Active Substance: LEVETIRACETAM
     Indication: Epilepsy
     Dosage: 1500 MILLIGRAM, ONCE DAILY (QD) (3 TABLETS OF 500 MG AT NIGHT)
     Dates: start: 2023
  4. LACOSAMIDE [Concomitant]
     Active Substance: LACOSAMIDE
     Indication: Epilepsy
     Dosage: 150 MILLIGRAM, 2X/DAY (BID)
     Route: 048
     Dates: start: 202311

REACTIONS (4)
  - Seizure [Recovering/Resolving]
  - Drug ineffective [Unknown]
  - Off label use [Unknown]
  - Overdose [Unknown]

NARRATIVE: CASE EVENT DATE: 20220703
